FAERS Safety Report 12351960 (Version 2)
Quarter: 2016Q3

REPORT INFORMATION
  Report Type: Spontaneous
  Country: SV (occurrence: SV)
  Receive Date: 20160510
  Receipt Date: 20160712
  Transmission Date: 20161109
  Serious: Yes (Death, Life-Threatening, Other)
  Sender: FDA-Public Use
  Company Number: SV-ELI_LILLY_AND_COMPANY-SV201605001662

PATIENT
  Age: 74 Year
  Sex: Male

DRUGS (2)
  1. OLANZAPINE. [Suspect]
     Active Substance: OLANZAPINE
     Indication: PRODUCT USED FOR UNKNOWN INDICATION
     Dosage: UNK, UNKNOWN
     Route: 048
  2. AMANTADINE [Suspect]
     Active Substance: AMANTADINE
     Indication: CHRONIC KIDNEY DISEASE
     Dosage: UNK, UNKNOWN
     Route: 065

REACTIONS (8)
  - Peritonitis [Unknown]
  - Multiple organ dysfunction syndrome [Fatal]
  - Cardiac arrest [Unknown]
  - Intestinal obstruction [Recovered/Resolved]
  - Diverticulum [Unknown]
  - Sepsis [Fatal]
  - Acute kidney injury [Fatal]
  - Abscess intestinal [Unknown]
